FAERS Safety Report 11460188 (Version 1)
Quarter: 2015Q3

REPORT INFORMATION
  Report Type: Spontaneous
  Country: IN (occurrence: IN)
  Receive Date: 20150904
  Receipt Date: 20150904
  Transmission Date: 20151125
  Serious: Yes (Hospitalization)
  Sender: FDA-Public Use
  Company Number: IN-ASTRAZENECA-2015SE83832

PATIENT
  Age: 72 Year
  Sex: Male
  Weight: 68 kg

DRUGS (13)
  1. ONDANSETRON [Concomitant]
     Active Substance: ONDANSETRON
     Dosage: 8 MG
  2. PROPOFOL. [Interacting]
     Active Substance: PROPOFOL
     Indication: ANAESTHESIA
     Dosage: 2 MG/KG
     Route: 042
  3. MORPHINE [Concomitant]
     Active Substance: MORPHINE
  4. FENTANYL. [Concomitant]
     Active Substance: FENTANYL
     Dosage: 100 UG
  5. METOPROLOL XL [Suspect]
     Active Substance: METOPROLOL
     Indication: HYPERTENSION
     Route: 048
  6. AMLODIPINE [Interacting]
     Active Substance: AMLODIPINE BESYLATE
     Indication: HYPERTENSION
     Route: 065
  7. ISOFLURANE. [Interacting]
     Active Substance: ISOFLURANE
     Indication: ANAESTHESIA
     Route: 065
  8. ADRENALINE [Concomitant]
     Active Substance: EPINEPHRINE
     Dosage: SERIALLY ADDED AND ESCALATED TO MAXIMUM (20 MCG/MIN)
  9. OXYGEN IN NITROUS OXIDE [Concomitant]
  10. GLYCOPYRROLATE. [Concomitant]
     Active Substance: GLYCOPYRROLATE
     Dosage: 0.2 MG
  11. VECURONIUM [Interacting]
     Active Substance: VECURONIUM BROMIDE
     Indication: ANAESTHESIA
     Dosage: 0.1 MG/KG
     Route: 042
  12. DOPAMINE [Concomitant]
     Active Substance: DOPAMINE\DOPAMINE HYDROCHLORIDE
     Dosage: SERIALLY ADDED AND ESCALATED TO MAXIMUM (20 MCG/MIN)
  13. NOREPINEPHRINE [Concomitant]
     Active Substance: NOREPINEPHRINE\NOREPINEPHRINE BITARTRATE
     Dosage: SERIALLY ADDED AND ESCALATED TO MAXIMUM (20 MCG/MIN)

REACTIONS (11)
  - Hypoperfusion [Unknown]
  - Urine output decreased [Recovering/Resolving]
  - Hypothermia [Unknown]
  - Oxygen saturation decreased [Unknown]
  - Blood pressure decreased [Recovering/Resolving]
  - Heart rate increased [Unknown]
  - Inferior vena caval occlusion [Not Recovered/Not Resolved]
  - Metabolic acidosis [Unknown]
  - Toxicity to various agents [Unknown]
  - Lactic acidosis [Unknown]
  - Drug interaction [Unknown]
